FAERS Safety Report 9217008 (Version 1)
Quarter: 2013Q2

REPORT INFORMATION
  Report Type: Spontaneous
  Country: AU (occurrence: AU)
  Receive Date: 20130408
  Receipt Date: 20130408
  Transmission Date: 20140414
  Serious: Yes (Hospitalization, Other)
  Sender: FDA-Public Use
  Company Number: AU-ROXANE LABORATORIES, INC.-2013-RO-00442RO

PATIENT
  Age: 73 Year
  Sex: Female

DRUGS (2)
  1. FLECAINIDE [Suspect]
     Indication: ATRIAL FIBRILLATION
     Dosage: 100 MG
  2. OMEPRAZOLE [Concomitant]
     Dosage: 40 MG

REACTIONS (2)
  - Transient ischaemic attack [Unknown]
  - Neutropenia [Recovered/Resolved]
